FAERS Safety Report 13831395 (Version 1)
Quarter: 2017Q3

REPORT INFORMATION
  Report Type: Spontaneous
  Country: MX (occurrence: MX)
  Receive Date: 20170803
  Receipt Date: 20170803
  Transmission Date: 20171127
  Serious: Yes (Other)
  Sender: FDA-Public Use
  Company Number: MX-ELI_LILLY_AND_COMPANY-MX201707010188

PATIENT
  Age: 18 Year
  Sex: Female

DRUGS (1)
  1. STRATTERA [Suspect]
     Active Substance: ATOMOXETINE HYDROCHLORIDE
     Indication: ATTENTION DEFICIT/HYPERACTIVITY DISORDER
     Dosage: 40 MG, DAILY
     Route: 065

REACTIONS (4)
  - Chest pain [Unknown]
  - Night sweats [Unknown]
  - Throat tightness [Unknown]
  - Tachycardia [Unknown]

NARRATIVE: CASE EVENT DATE: 20170719
